FAERS Safety Report 5049874-4 (Version None)
Quarter: 2006Q3

REPORT INFORMATION
  Report Type: 
  Country: None (occurrence: None)
  Receive Date: 20060706
  Receipt Date: 20060622
  Transmission Date: 20061208
  Serious: Yes (Other)
  Sender: FDA-Public Use
  Company Number: 200612906BWH

PATIENT
  Sex: Female

DRUGS (1)
  1. AVELOX [Suspect]
     Indication: RESPIRATORY TRACT INFECTION
     Dosage: ORAL
     Route: 048
     Dates: start: 20060404, end: 20060408

REACTIONS (27)
  - AMNESIA [None]
  - ARTHRALGIA [None]
  - BREAST INFECTION [None]
  - CANDIDIASIS [None]
  - CERVIX CARCINOMA RECURRENT [None]
  - COGNITIVE DISORDER [None]
  - CONVULSION [None]
  - DIZZINESS [None]
  - DYSPHAGIA [None]
  - DYSSTASIA [None]
  - EMOTIONAL DISTRESS [None]
  - FALL [None]
  - GAIT DISTURBANCE [None]
  - HEADACHE [None]
  - HYPERSENSITIVITY [None]
  - HYPOAESTHESIA [None]
  - IMMUNODEFICIENCY [None]
  - IMPAIRED WORK ABILITY [None]
  - MUSCULAR WEAKNESS [None]
  - ORAL CANDIDIASIS [None]
  - PARAESTHESIA [None]
  - SENSORY LOSS [None]
  - SPEECH DISORDER [None]
  - TREMOR [None]
  - VISION BLURRED [None]
  - VISUAL DISTURBANCE [None]
  - VITAMIN B COMPLEX DEFICIENCY [None]
